FAERS Safety Report 24627924 (Version 1)
Quarter: 2024Q4

REPORT INFORMATION
  Report Type: Spontaneous
  Country: US (occurrence: US)
  Receive Date: 20241117
  Receipt Date: 20241117
  Transmission Date: 20250114
  Serious: Yes (Other)
  Sender: DR REDDYS
  Company Number: US-DRL-USA-LIT/USA/24/0016934

PATIENT
  Age: 22 Year
  Sex: Female

DRUGS (2)
  1. SIROLIMUS [Suspect]
     Active Substance: SIROLIMUS
     Indication: Rhabdomyoma
  2. SIROLIMUS [Suspect]
     Active Substance: SIROLIMUS
     Dosage: DOSE ADJUSTMENTS FOR TARGET TROUGH SIROLIMUS OF 10 TO 15 NG/ML.

REACTIONS (2)
  - Exposure during pregnancy [Unknown]
  - Product use in unapproved indication [Unknown]
